FAERS Safety Report 5472594-9 (Version None)
Quarter: 2007Q4

REPORT INFORMATION
  Report Type: 
  Country: None (occurrence: None)
  Receive Date: 20071001
  Receipt Date: 20060719
  Transmission Date: 20080405
  Serious: No
  Sender: FDA-Public Use
  Company Number: US-ASTRAZENECA-2006UW03939

PATIENT
  Age: 58 Year
  Sex: Female
  Weight: 59 kg

DRUGS (3)
  1. ARIMIDEX [Suspect]
     Indication: BREAST CANCER FEMALE
     Route: 048
     Dates: start: 20010801, end: 20060201
  2. ACTONEL [Concomitant]
  3. ACYCLOVIR [Concomitant]
     Dosage: FOR FIVE DAYS
     Route: 048
     Dates: start: 20060305, end: 20060320

REACTIONS (6)
  - BONE DENSITY DECREASED [None]
  - DYSPNOEA [None]
  - OEDEMA PERIPHERAL [None]
  - ORAL PRURITUS [None]
  - STOMATITIS [None]
  - TONGUE ERUPTION [None]
